FAERS Safety Report 6000667-0 (Version None)
Quarter: 2008Q4

REPORT INFORMATION
  Report Type: 
  Country: None (occurrence: None)
  Receive Date: 20081211
  Receipt Date: 20081021
  Transmission Date: 20090506
  Serious: Yes (Disabling)
  Sender: FDA-Public Use
  Company Number: 2008AL012267

PATIENT
  Age: 63 Year
  Sex: Male

DRUGS (3)
  1. IRINOTECAN HYDROCHLORIDE INJECTION [Suspect]
     Indication: COLON CANCER METASTATIC
     Dosage: 350 MG/M**2; IV
     Route: 042
     Dates: start: 20080718, end: 20080919
  2. OXALIPLATIN [Concomitant]
  3. CAPECITABINE [Concomitant]

REACTIONS (2)
  - CONDITION AGGRAVATED [None]
  - NEUROPATHY PERIPHERAL [None]
